FAERS Safety Report 9495648 (Version 3)
Quarter: 2013Q4

REPORT INFORMATION
  Report Type: Spontaneous
  Country: US (occurrence: US)
  Receive Date: 20130903
  Receipt Date: 20131001
  Transmission Date: 20140711
  Serious: Yes (Hospitalization)
  Sender: FDA-Public Use
  Company Number: CHPA2013US013618

PATIENT
  Age: 50 Year
  Sex: Female

DRUGS (5)
  1. VOLTAREN GEL [Suspect]
     Indication: OSTEOARTHRITIS
     Dosage: VARYING AMOUNT, 1-2 TIMES A DAY
     Route: 061
     Dates: start: 2008
  2. VOLTAREN GEL [Suspect]
     Indication: FIBROMYALGIA
  3. LYRICA [Concomitant]
     Dosage: 50 MG, UNK
     Route: 048
     Dates: start: 20130801
  4. NAPROSYN [Concomitant]
     Dosage: UNK, UNK
     Route: 048
     Dates: start: 20130801
  5. VENLAFAXINE [Concomitant]
     Dosage: UNK, UNK
     Route: 048
     Dates: start: 20130801

REACTIONS (9)
  - Haemorrhoidal haemorrhage [Unknown]
  - Anaemia [Unknown]
  - Visual acuity reduced [Not Recovered/Not Resolved]
  - Overdose [Unknown]
  - Therapeutic response unexpected [Unknown]
  - Off label use [Unknown]
  - Underdose [Unknown]
  - Drug administered at inappropriate site [Unknown]
  - Expired drug administered [Unknown]
